FAERS Safety Report 18500974 (Version 1)
Quarter: 2020Q4

REPORT INFORMATION
  Report Type: Spontaneous
  Country: US (occurrence: US)
  Receive Date: 20201112
  Receipt Date: 20201112
  Transmission Date: 20210114
  Serious: Yes (Hospitalization)
  Sender: FDA-Public Use
  Company Number: None

PATIENT
  Age: 51 Year
  Sex: Female

DRUGS (1)
  1. JANTOVEN [Suspect]
     Active Substance: WARFARIN SODIUM
     Indication: HIV INFECTION
     Route: 048
     Dates: start: 20200531

REACTIONS (1)
  - Peripheral swelling [None]

NARRATIVE: CASE EVENT DATE: 20201026
